FAERS Safety Report 24336473 (Version 2)
Quarter: 2024Q4

REPORT INFORMATION
  Report Type: Spontaneous
  Country: CA (occurrence: CA)
  Receive Date: 20240919
  Receipt Date: 20241003
  Transmission Date: 20250115
  Serious: Yes (Death, Other)
  Sender: TEVA
  Company Number: CA-TEVA-VS-3243213

PATIENT
  Age: 92 Year
  Sex: Female

DRUGS (4)
  1. METHOTREXATE [Suspect]
     Active Substance: METHOTREXATE
     Indication: Polymyalgia rheumatica
     Route: 065
  2. COLCHICINE [Concomitant]
     Active Substance: COLCHICINE
     Indication: Chondrocalcinosis
     Route: 065
  3. TRIAMCINOLONE [Suspect]
     Active Substance: TRIAMCINOLONE
     Indication: Xanthogranuloma
     Dosage: 10?MG/ML
     Route: 026
  4. PREDNISONE [Concomitant]
     Active Substance: PREDNISONE
     Indication: Chondrocalcinosis
     Route: 065

REACTIONS (2)
  - Toxicity to various agents [Fatal]
  - Drug ineffective [Unknown]
